FAERS Safety Report 7637608-6 (Version None)
Quarter: 2011Q3

REPORT INFORMATION
  Report Type: 
  Country: None (occurrence: None)
  Receive Date: 20110726
  Receipt Date: 20110720
  Transmission Date: 20111222
  Serious: Yes (Other)
  Sender: FDA-Public Use
  Company Number: GXKR2011DE02375

PATIENT
  Sex: Male

DRUGS (15)
  1. CANDESARTAN CILEXETIL [Suspect]
     Dosage: 16 MG, UNK
     Route: 048
  2. ONBREZ BREEZHALER [Suspect]
     Dosage: UNK UKN, QD
  3. CARVEDILOL [Suspect]
     Dosage: 12.5 MG, QD
     Route: 048
  4. BUDESONIDE [Suspect]
     Dosage: 2 DF, BID
  5. TORSEMIDE [Suspect]
     Dosage: 10 MG, QD
     Route: 048
  6. TORSEMIDE [Suspect]
     Dosage: 5 MG, QD
  7. PROCORALAN [Suspect]
     Dosage: UNK MG, 1-0-0.5 PER DAY
     Route: 048
  8. PANTOPRAZOLE [Suspect]
     Dosage: 40 MG, QD
     Route: 048
  9. INSPRA [Suspect]
     Dosage: 25 MG, QD
     Route: 048
  10. CARVEDILOL [Suspect]
     Dosage: 12.5 MG, 2-0-2 PER DAY
     Route: 048
  11. PROCORALAN [Suspect]
     Dosage: 5 MG, BID
     Route: 048
  12. ATACAND [Suspect]
     Dosage: 16 MG, QD
     Route: 048
  13. HYDROCHLOROTHIAZIDE [Suspect]
     Dosage: 25 MG, UNK
     Route: 048
  14. ATACAND [Suspect]
     Dosage: 32 MG, QD
  15. SPIRIVA [Suspect]
     Dosage: 18 UKN, QD
     Route: 048

REACTIONS (5)
  - BLOOD ALKALINE PHOSPHATASE INCREASED [None]
  - ALANINE AMINOTRANSFERASE INCREASED [None]
  - HEART RATE DECREASED [None]
  - GAMMA-GLUTAMYLTRANSFERASE INCREASED [None]
  - BLOOD PRESSURE DECREASED [None]
